FAERS Safety Report 7741351-2 (Version None)
Quarter: 2011Q3

REPORT INFORMATION
  Report Type: 
  Country: None (occurrence: None)
  Receive Date: 20110909
  Receipt Date: 20110907
  Transmission Date: 20111222
  Serious: Yes (Other)
  Sender: FDA-Public Use
  Company Number: US-PFIZER INC-2008053899

PATIENT
  Sex: Female
  Weight: 97.052 kg

DRUGS (16)
  1. CHANTIX [Suspect]
     Indication: SMOKING CESSATION THERAPY
     Dosage: 0.5 MG, 1X/DAY
     Route: 048
     Dates: start: 20080101
  2. CODEINE SULFATE [Concomitant]
  3. PIROXICAM [Concomitant]
  4. GEODON [Concomitant]
  5. ZOLPIDEM [Concomitant]
     Indication: SLEEP DISORDER
  6. LISINOPRIL [Concomitant]
  7. VITAMIN TAB [Concomitant]
  8. FLURAZEPAM [Concomitant]
     Dosage: UNK
  9. LIDOCAINE [Concomitant]
     Indication: LIMB DISCOMFORT
     Dosage: UNK
  10. KEPPRA [Concomitant]
  11. KLONOPIN [Concomitant]
     Dosage: UNK
  12. COMBIVENT [Concomitant]
  13. CHANTIX [Suspect]
     Dosage: UNK
  14. ZONEGRAN [Concomitant]
     Indication: CONVULSION
  15. FLONASE [Concomitant]
  16. FLOVENT [Concomitant]

REACTIONS (27)
  - ANXIETY [None]
  - MOOD ALTERED [None]
  - INSOMNIA [None]
  - DRUG INEFFECTIVE [None]
  - CHEST DISCOMFORT [None]
  - SYNCOPE [None]
  - NECK PAIN [None]
  - AGGRESSION [None]
  - FOOD CRAVING [None]
  - HUNGER [None]
  - ABDOMINAL DISCOMFORT [None]
  - FALL [None]
  - ABDOMINAL PAIN UPPER [None]
  - NEUROPATHY PERIPHERAL [None]
  - FEELING ABNORMAL [None]
  - SCREAMING [None]
  - CRYING [None]
  - GASTRIC DISORDER [None]
  - MALAISE [None]
  - INCREASED APPETITE [None]
  - WEIGHT INCREASED [None]
  - INCORRECT DOSE ADMINISTERED [None]
  - ABDOMINAL DISTENSION [None]
  - INJURY [None]
  - NICOTINE DEPENDENCE [None]
  - DYSGEUSIA [None]
  - MUSCULOSKELETAL DISCOMFORT [None]
